FAERS Safety Report 20064907 (Version 1)
Quarter: 2021Q4

REPORT INFORMATION
  Report Type: Spontaneous
  Country: US (occurrence: None)
  Receive Date: 20211112
  Receipt Date: 20211112
  Transmission Date: 20220304
  Serious: Yes (Other)
  Sender: FDA-Public Use
  Company Number: US-ROCHE-2956415

PATIENT
  Sex: Female

DRUGS (1)
  1. OCREVUS [Suspect]
     Active Substance: OCRELIZUMAB
     Indication: Multiple sclerosis
     Dosage: 300MG IV AT DAY 0 AND 14 THEN 600 MG EVERY SIX MONTHS
     Route: 042
     Dates: start: 20210930

REACTIONS (1)
  - Multiple sclerosis relapse [Unknown]
